FAERS Safety Report 10003807 (Version 3)
Quarter: 2014Q1

REPORT INFORMATION
  Report Type: Report from Study
  Country: AU (occurrence: AU)
  Receive Date: 20140312
  Receipt Date: 20140327
  Transmission Date: 20141002
  Serious: Yes (Hospitalization)
  Sender: FDA-Public Use
  Company Number: AU-CELGENEUS-008-CCAZA-12020974

PATIENT
  Age: 68 Year
  Sex: Female
  Weight: 59.4 kg

DRUGS (16)
  1. AZACITIDINE INJECTABLE [Suspect]
     Indication: ACUTE MYELOID LEUKAEMIA
     Dosage: 75 MILLIGRAM/SQ. METER
     Route: 058
     Dates: start: 20120117, end: 20120123
  2. AZACITIDINE INJECTABLE [Suspect]
     Dosage: 75 MILLIGRAM/SQ. METER
     Route: 058
     Dates: start: 20120228, end: 20120305
  3. AZACITIDINE INJECTABLE [Suspect]
     Route: 058
     Dates: end: 20120327
  4. AZACITIDINE INJECTABLE [Suspect]
     Dosage: 75 MILLIGRAM/SQ. METER
     Route: 058
     Dates: start: 20120403, end: 20120409
  5. POSACONAZOLE [Concomitant]
     Indication: ANTIFUNGAL PROPHYLAXIS
     Dosage: 800 MILLIGRAM
     Route: 048
     Dates: start: 20120108, end: 20120330
  6. ESOMEPRAZOLE [Concomitant]
     Indication: GASTROOESOPHAGEAL REFLUX PROPHYLAXIS
     Dosage: 40 MILLIGRAM
     Route: 048
  7. PRAVASTATIN [Concomitant]
     Indication: HYPERCHOLESTEROLAEMIA
     Dosage: 20 MILLIGRAM
     Route: 048
     Dates: start: 2011
  8. PRAVASTATIN [Concomitant]
     Dosage: 20 MILLIGRAM
     Route: 048
     Dates: start: 2012
  9. COLOXYL C SENNA [Concomitant]
     Indication: CONSTIPATION
     Route: 048
     Dates: start: 20120122
  10. NEXIUM [Concomitant]
     Indication: GASTROOESOPHAGEAL REFLUX DISEASE
     Dosage: 40 MILLIGRAM
     Route: 048
     Dates: start: 20120115
  11. VALTREX [Concomitant]
     Indication: INFECTION PROPHYLAXIS
     Dosage: 500 MILLIGRAM
     Route: 048
     Dates: start: 20120106, end: 20120326
  12. MAXOLON [Concomitant]
     Indication: PROPHYLAXIS OF NAUSEA AND VOMITING
     Route: 048
     Dates: start: 20120108, end: 20120331
  13. MAXOLON [Concomitant]
     Indication: NAUSEA
     Dosage: 60 MILLIGRAM
     Route: 048
     Dates: start: 20120306
  14. MAXOLON [Concomitant]
     Dosage: 10-20MG
     Route: 041
     Dates: start: 20120504
  15. CARMELLOSE [Concomitant]
     Indication: DRY EYE
     Route: 031
     Dates: start: 20120313
  16. CARMELLOSE [Concomitant]
     Dosage: 20 MILLIGRAM
     Route: 048
     Dates: start: 2012

REACTIONS (7)
  - Fluid overload [Recovered/Resolved]
  - Infected cyst [Recovered/Resolved]
  - Febrile neutropenia [Recovered/Resolved]
  - Febrile neutropenia [Recovered/Resolved]
  - Enterobacter pneumonia [Recovered/Resolved]
  - Corynebacterium infection [Recovered/Resolved]
  - Pharyngitis [Recovered/Resolved]
